FAERS Safety Report 20159055 (Version 1)
Quarter: 2021Q4

REPORT INFORMATION
  Report Type: Spontaneous
  Country: US (occurrence: US)
  Receive Date: 20211208
  Receipt Date: 20211208
  Transmission Date: 20220303
  Serious: Yes (Life-Threatening)
  Sender: FDA-Public Use
  Company Number: US-AMERICAN REGENT INC-2020002437

PATIENT
  Age: 46 Year
  Sex: Female
  Weight: 55.79 kg

DRUGS (9)
  1. VENOFER [Suspect]
     Active Substance: IRON SUCROSE
     Indication: Iron deficiency anaemia
     Dosage: 400 MG GIVEN OVER 2.5 HOURS
     Route: 042
     Dates: start: 20201111, end: 20201111
  2. VENOFER [Suspect]
     Active Substance: IRON SUCROSE
     Indication: Heavy menstrual bleeding
  3. XANAX [Concomitant]
     Active Substance: ALPRAZOLAM
     Indication: Anxiety
     Dosage: 0.25 MG, BID AS NEEDED
     Route: 048
  4. ZYRTEC [Concomitant]
     Active Substance: CETIRIZINE HYDROCHLORIDE
     Indication: Product used for unknown indication
     Dosage: 10 MILLIGRAM, QD
     Route: 048
  5. EPIPEN [Concomitant]
     Active Substance: EPINEPHRINE
     Indication: Hypersensitivity
     Dosage: 0.3 MG, PRN, UP TO 1 DOSE
     Route: 030
  6. SARAFEM [Concomitant]
     Active Substance: FLUOXETINE HYDROCHLORIDE
     Indication: Product used for unknown indication
     Dosage: 30 MG, QD (THREE 10 MG TABLETS EVERY MORNING)
  7. NEURONTIN [Concomitant]
     Active Substance: GABAPENTIN
     Indication: Ill-defined disorder
     Dosage: 1-3 TAB AT BEDTIME PRN; MAY TAKE 1 TID IF NOT NOTING SEDATION
     Route: 048
  8. PRILOSEC                           /00661201/ [Concomitant]
     Indication: Abdominal discomfort
     Dosage: 20 MG, QD IF NEEDED
     Route: 048
  9. MAXALT [Concomitant]
     Active Substance: RIZATRIPTAN BENZOATE
     Indication: Migraine
     Dosage: 10 MG (1/2-1 TAB AT ONSET OF MIGRAINE; MAY REPEAT IN 2 HRS.)
     Route: 065

REACTIONS (1)
  - Anaphylactic reaction [Recovered/Resolved]

NARRATIVE: CASE EVENT DATE: 20201111
